FAERS Safety Report 4386622-5 (Version None)
Quarter: 2004Q2

REPORT INFORMATION
  Report Type: 
  Country: None (occurrence: None)
  Receive Date: 20040629
  Receipt Date: 20040617
  Transmission Date: 20050107
  Serious: Yes (Hospitalization)
  Sender: FDA-Public Use
  Company Number: AU-GLAXOSMITHKLINE-B0336877A

PATIENT
  Age: 45 Year
  Sex: Female

DRUGS (2)
  1. PAROXETINE HCL [Suspect]
     Dosage: 20MG PER DAY
     Dates: start: 20000701, end: 20040105
  2. VALPROIC ACID [Concomitant]
     Dates: start: 20030201, end: 20040310

REACTIONS (9)
  - CONVULSION [None]
  - DIZZINESS [None]
  - EPILEPSY [None]
  - ROAD TRAFFIC ACCIDENT [None]
  - SENSATION OF PRESSURE IN EAR [None]
  - SEROTONIN SYNDROME [None]
  - SOMNOLENCE [None]
  - TREMOR [None]
  - VERTIGO [None]
